FAERS Safety Report 17864461 (Version 1)
Quarter: 2020Q2

REPORT INFORMATION
  Report Type: Spontaneous
  Country: US (occurrence: US)
  Receive Date: 20200604
  Receipt Date: 20200604
  Transmission Date: 20200714
  Serious: No
  Sender: FDA-Public Use
  Company Number: None

PATIENT
  Age: 68 Year
  Sex: Male
  Weight: 78.75 kg

DRUGS (1)
  1. MOXIFLOXACIN SOLUTION/ DROPS [Suspect]
     Active Substance: MOXIFLOXACIN
     Indication: EYE PRURITUS
     Dosage: ?          QUANTITY:1 DROP(S);?
     Route: 047
     Dates: start: 20200515, end: 20200516

REACTIONS (1)
  - Eye swelling [None]

NARRATIVE: CASE EVENT DATE: 20200515
